FAERS Safety Report 19760679 (Version 2)
Quarter: 2021Q3

REPORT INFORMATION
  Report Type: Report from Study
  Country: US (occurrence: US)
  Receive Date: 20210830
  Receipt Date: 20210920
  Transmission Date: 20211014
  Serious: Yes (Other)
  Sender: FDA-Public Use
  Company Number: NVSC2021US193555

PATIENT
  Sex: Male

DRUGS (1)
  1. ENTRESTO [Suspect]
     Active Substance: SACUBITRIL\VALSARTAN
     Indication: PRODUCT USED FOR UNKNOWN INDICATION
     Dosage: UNK
     Route: 048
     Dates: start: 2019

REACTIONS (6)
  - Neuropathy peripheral [Unknown]
  - Haemorrhage urinary tract [Unknown]
  - Gait disturbance [Unknown]
  - Fall [Unknown]
  - Blood urine present [Unknown]
  - Ejection fraction decreased [Unknown]
